FAERS Safety Report 8372099-1 (Version None)
Quarter: 2012Q2

REPORT INFORMATION
  Report Type: 
  Country: None (occurrence: None)
  Receive Date: 20120520
  Receipt Date: 20120514
  Transmission Date: 20120825
  Serious: Yes (Hospitalization)
  Sender: FDA-Public Use
  Company Number: US-AMGEN-USASP2012030255

PATIENT
  Age: 65 Year
  Sex: Female

DRUGS (1)
  1. ENBREL [Suspect]
     Indication: RHEUMATOID ARTHRITIS
     Dosage: 50 MG, QWK
     Dates: start: 20070701

REACTIONS (10)
  - FALL [None]
  - BONE LOSS [None]
  - TOOTH ABSCESS [None]
  - ANTIPHOSPHOLIPID SYNDROME [None]
  - ARTIFICIAL CROWN PROCEDURE [None]
  - OSTEOPENIA [None]
  - ENDODONTIC PROCEDURE [None]
  - ANKLE FRACTURE [None]
  - CATARACT [None]
  - SINUS PERFORATION [None]
